FAERS Safety Report 6111367-0 (Version None)
Quarter: 2009Q1

REPORT INFORMATION
  Report Type: 
  Country: None (occurrence: None)
  Receive Date: 20090311
  Receipt Date: 20090304
  Transmission Date: 20090719
  Serious: No
  Sender: FDA-Public Use
  Company Number: B0556696A

PATIENT
  Age: 13 Year
  Sex: Male

DRUGS (4)
  1. RELENZA [Suspect]
     Indication: INFLUENZA
     Route: 055
     Dates: start: 20090116, end: 20090220
  2. BROCIN CODEINE [Suspect]
     Indication: COUGH
     Dosage: 6ML THREE TIMES PER DAY
     Route: 048
     Dates: start: 20090116, end: 20090120
  3. SENEGA [Concomitant]
     Indication: COUGH
     Dosage: 300ML PER DAY
     Route: 048
     Dates: start: 20090116, end: 20090120
  4. HOKUNALIN [Concomitant]
     Indication: COUGH
     Dosage: 2MG PER DAY
     Route: 062
     Dates: start: 20090116, end: 20090120

REACTIONS (5)
  - ABNORMAL BEHAVIOUR [None]
  - AMNESIA [None]
  - LOSS OF CONSCIOUSNESS [None]
  - SOMNOLENCE [None]
  - VOMITING [None]
